FAERS Safety Report 6090370-3 (Version None)
Quarter: 2009Q1

REPORT INFORMATION
  Report Type: 
  Country: None (occurrence: None)
  Receive Date: 20090220
  Receipt Date: 20071127
  Transmission Date: 20090719
  Serious: Yes (Hospitalization, Other)
  Sender: FDA-Public Use
  Company Number: 2007AP001388

PATIENT
  Age: 33 Year
  Sex: Male

DRUGS (6)
  1. LITHIUM CARBONATE [Suspect]
     Indication: SCHIZOAFFECTIVE DISORDER
     Dosage: 1800 MG; HS PO
     Route: 048
  2. CLOZAPINE [Suspect]
     Indication: SCHIZOAFFECTIVE DISORDER
     Dosage: 300 MG; HS PO
     Route: 048
  3. QUETIAPINE (QUETIAPINE) [Suspect]
     Dosage: 700 MG; HS PO
     Route: 048
  4. HALOPERIDOL [Suspect]
     Dosage: INJECT;
  5. LOXAPINE [Concomitant]
  6. HALOPERIDOL INJECTION (HALOPERIDOL LACTATE) [Concomitant]

REACTIONS (3)
  - PRIAPISM [None]
  - PSYCHOTIC DISORDER [None]
  - TREATMENT NONCOMPLIANCE [None]
